FAERS Safety Report 12855255 (Version 2)
Quarter: 2016Q4

REPORT INFORMATION
  Report Type: Report from Study
  Country: AR (occurrence: AR)
  Receive Date: 20161017
  Receipt Date: 20161129
  Transmission Date: 20170207
  Serious: Yes (Other)
  Sender: FDA-Public Use
  Company Number: PHHY2016AR141652

PATIENT
  Sex: Male

DRUGS (3)
  1. SIMETHICONE (DIMETHICONE) [Concomitant]
     Active Substance: DIMETHICONE
     Indication: PAIN
     Dosage: UNK
     Route: 065
     Dates: start: 201604
  2. GLIVEC [Suspect]
     Active Substance: IMATINIB MESYLATE
     Indication: CHRONIC MYELOID LEUKAEMIA
     Dosage: 400 MG, QD
     Route: 048
     Dates: start: 201605
  3. TRIMEBUTINE [Concomitant]
     Active Substance: TRIMEBUTINE
     Indication: PAIN
     Dosage: UNK
     Route: 065
     Dates: start: 201604

REACTIONS (9)
  - Fear [Unknown]
  - Diarrhoea [Recovering/Resolving]
  - Depression [Unknown]
  - Gastrointestinal inflammation [Recovering/Resolving]
  - Gastrointestinal pain [Recovering/Resolving]
  - Anxiety [Unknown]
  - Myalgia [Unknown]
  - Muscle spasms [Unknown]
  - Intestinal polyp [Recovering/Resolving]
